FAERS Safety Report 12809188 (Version 1)
Quarter: 2016Q4

REPORT INFORMATION
  Report Type: Spontaneous
  Country: US (occurrence: US)
  Receive Date: 20161004
  Receipt Date: 20161004
  Transmission Date: 20170207
  Serious: No
  Sender: FDA-Public Use
  Company Number: US-ASTRAZENECA-2016SF01958

PATIENT
  Age: 61 Year
  Sex: Female
  Weight: 81.6 kg

DRUGS (11)
  1. NIRTOGLYCERIN [Concomitant]
  2. RENVELA [Concomitant]
     Active Substance: SEVELAMER CARBONATE
  3. ISOSORBIDE MONONITRATE ER [Concomitant]
  4. NOVOLOG [Concomitant]
     Active Substance: INSULIN ASPART
  5. VITAMIN D [Concomitant]
     Active Substance: CHOLECALCIFEROL
  6. ASPIRIN. [Concomitant]
     Active Substance: ASPIRIN
  7. METOPROLOL SUCCINATE. [Suspect]
     Active Substance: METOPROLOL SUCCINATE
     Route: 048
  8. BRILINTA [Suspect]
     Active Substance: TICAGRELOR
     Indication: ACUTE MYOCARDIAL INFARCTION
     Route: 048
  9. RENAL [Concomitant]
  10. IMDUR [Concomitant]
     Active Substance: ISOSORBIDE MONONITRATE
  11. SIMVASTATIN. [Concomitant]
     Active Substance: SIMVASTATIN

REACTIONS (1)
  - Gastrointestinal haemorrhage [Recovered/Resolved]
